FAERS Safety Report 5251846-1 (Version None)
Quarter: 2007Q1

REPORT INFORMATION
  Report Type: 
  Country: None (occurrence: None)
  Receive Date: 20070223
  Receipt Date: 20070212
  Transmission Date: 20070707
  Serious: Yes (Other)
  Sender: FDA-Public Use
  Company Number: 236437

PATIENT
  Age: 16 Year
  Sex: Female

DRUGS (4)
  1. NUTROPIN AQ [Suspect]
     Indication: HYPOPITUITARISM
     Dosage: 1.5 MG, 7/WEEK, SUBCUTANEOUS
     Route: 058
     Dates: start: 20040116
  2. CORTEF [Concomitant]
  3. LEVOTHYROXINE SODIUM [Concomitant]
  4. VIVELLE-DOT [Concomitant]

REACTIONS (3)
  - DIZZINESS [None]
  - FALL [None]
  - SYNCOPE [None]
